FAERS Safety Report 23054330 (Version 1)
Quarter: 2023Q4

REPORT INFORMATION
  Report Type: Spontaneous
  Country: US (occurrence: US)
  Receive Date: 20231011
  Receipt Date: 20231011
  Transmission Date: 20240110
  Serious: Yes (Hospitalization, Other)
  Sender: FDA-Public Use
  Company Number: US-INCYTE CORPORATION-2023IN010548

PATIENT

DRUGS (1)
  1. JAKAFI [Suspect]
     Active Substance: RUXOLITINIB
     Indication: Myelofibrosis
     Dosage: 10MG IN THE MORNING AND 5MG IN THE EVENING
     Route: 048
     Dates: start: 2022

REACTIONS (3)
  - Graft versus host disease [Unknown]
  - Internal haemorrhage [Unknown]
  - Bone marrow disorder [Unknown]
